FAERS Safety Report 11252217 (Version 1)
Quarter: 2015Q3

REPORT INFORMATION
  Report Type: Spontaneous
  Country: US (occurrence: US)
  Receive Date: 20150708
  Receipt Date: 20150708
  Transmission Date: 20151125
  Serious: Yes (Life-Threatening, Hospitalization)
  Sender: FDA-Public Use
  Company Number: US-ELI_LILLY_AND_COMPANY-US201305009077

PATIENT
  Age: 16 Year
  Sex: Male

DRUGS (4)
  1. VITAMIN D [Concomitant]
     Active Substance: CHOLECALCIFEROL
     Indication: NUTRITIONAL SUPPLEMENTATION
     Dosage: 50000 U, 2/M
     Dates: start: 20120919
  2. PROZAC [Suspect]
     Active Substance: FLUOXETINE HYDROCHLORIDE
     Indication: MAJOR DEPRESSION
     Dosage: 20 MG, QD
     Route: 048
     Dates: start: 20120908, end: 20121129
  3. CANNABIS [Concomitant]
     Active Substance: CANNABIS SATIVA SUBSP. INDICA TOP
  4. PHENCYCLIDINE [Concomitant]
     Active Substance: PHENCYCLIDINE

REACTIONS (4)
  - Depression suicidal [Recovering/Resolving]
  - Intentional overdose [Recovering/Resolving]
  - Drug dependence [Recovering/Resolving]
  - Substance abuse [Unknown]

NARRATIVE: CASE EVENT DATE: 20121129
